FAERS Safety Report 5674968-X (Version None)
Quarter: 2008Q1

REPORT INFORMATION
  Report Type: 
  Country: None (occurrence: None)
  Receive Date: 20080320
  Receipt Date: 20080310
  Transmission Date: 20080703
  Serious: Yes (Hospitalization, Other)
  Sender: FDA-Public Use
  Company Number: US-PFIZER INC-2008017465

PATIENT
  Sex: Male
  Weight: 145.45 kg

DRUGS (11)
  1. LIPITOR [Suspect]
     Indication: BLOOD CHOLESTEROL
     Route: 048
     Dates: start: 20000101, end: 20071101
  2. PLAVIX [Concomitant]
     Route: 048
  3. FOLIC ACID [Concomitant]
     Route: 048
  4. FUROSEMIDE [Concomitant]
     Route: 048
  5. SPIRIVA [Concomitant]
  6. ADVAIR DISKUS 100/50 [Concomitant]
     Dosage: FREQ:AS NEEDED
  7. PROZAC [Concomitant]
  8. TRAZODONE HCL [Concomitant]
  9. TEMAZEPAM [Concomitant]
  10. CLONAZEPAM [Concomitant]
  11. PERCOCET [Concomitant]

REACTIONS (19)
  - ABASIA [None]
  - ANXIETY [None]
  - ARTERIAL STENOSIS [None]
  - ASTHENIA [None]
  - BLOOD POTASSIUM INCREASED [None]
  - BLOOD PRESSURE INCREASED [None]
  - CATHETERISATION CARDIAC [None]
  - DIZZINESS [None]
  - HYPERLIPIDAEMIA [None]
  - ILL-DEFINED DISORDER [None]
  - MUSCULAR WEAKNESS [None]
  - NERVOUSNESS [None]
  - OBESITY [None]
  - OSTEOARTHRITIS [None]
  - PAIN IN EXTREMITY [None]
  - PERIPHERAL VASCULAR DISORDER [None]
  - PULMONARY HYPERTENSION [None]
  - SLEEP APNOEA SYNDROME [None]
  - WEIGHT INCREASED [None]
